FAERS Safety Report 7218942-0 (Version None)
Quarter: 2011Q1

REPORT INFORMATION
  Report Type: 
  Country: None (occurrence: None)
  Receive Date: 20110111
  Receipt Date: 20101228
  Transmission Date: 20110831
  Serious: Yes (Death)
  Sender: FDA-Public Use
  Company Number: US-RANBAXY-2010US-40848

PATIENT
  Age: 38 Year
  Sex: Male

DRUGS (1)
  1. AMOXICILLIN AND CLAVULANATE POTASSIUM [Suspect]
     Indication: PNEUMONIA
     Dosage: UNK, UNK
     Route: 065

REACTIONS (3)
  - ACUTE HEPATIC FAILURE [None]
  - TUBULOINTERSTITIAL NEPHRITIS [None]
  - STEVENS-JOHNSON SYNDROME [None]
